FAERS Safety Report 12874817 (Version 2)
Quarter: 2017Q4

REPORT INFORMATION
  Report Type: Spontaneous
  Country: CZ (occurrence: CZ)
  Receive Date: 20161022
  Receipt Date: 20171006
  Transmission Date: 20180320
  Serious: Yes (Life-Threatening, Hospitalization, Other)
  Sender: FDA-Public Use
  Company Number: CZ-GLENMARK PHARMACEUTICALS INC, USA.-2016GMK024606

PATIENT
  Age: 60 Year
  Sex: Male

DRUGS (3)
  1. CEFUROXIME. [Suspect]
     Active Substance: CEFUROXIME
     Indication: ANTIBIOTIC PROPHYLAXIS
     Dosage: UNK
     Route: 065
  2. INSULIN [Concomitant]
     Active Substance: INSULIN NOS
     Indication: TYPE 2 DIABETES MELLITUS
     Dosage: UNK
     Route: 065
  3. METFORMIN HYDROCHLORIDE. [Suspect]
     Active Substance: METFORMIN HYDROCHLORIDE
     Indication: TYPE 2 DIABETES MELLITUS
     Dosage: UNK
     Route: 065

REACTIONS (9)
  - Syncope [Recovered/Resolved]
  - Fall [Recovered/Resolved]
  - Hyperlactacidaemia [Recovered/Resolved]
  - Sepsis [Recovered/Resolved]
  - Metabolic acidosis [Recovered/Resolved]
  - Hypoglycaemia [Recovered/Resolved]
  - Acute kidney injury [Recovered/Resolved]
  - Systemic infection [Recovered/Resolved]
  - Urticaria [Recovered/Resolved]
